FAERS Safety Report 9685218 (Version 1)
Quarter: 2013Q4

REPORT INFORMATION
  Report Type: Spontaneous
  Country: US (occurrence: None)
  Receive Date: 20131112
  Receipt Date: 20131112
  Transmission Date: 20140711
  Serious: No
  Sender: FDA-Public Use
  Company Number: None

PATIENT
  Age: 69 Year
  Sex: Female
  Weight: 78.47 kg

DRUGS (9)
  1. ESCITALOPRAM TAB 10MG [Suspect]
     Indication: DEPRESSION
     Dosage: 10 MG 1 TAB EVERYDAY BY MOUTH
     Route: 048
     Dates: start: 20130520, end: 20130816
  2. LEVOTHYROXIN [Concomitant]
  3. METOPROLOL [Concomitant]
  4. LEXAPRO [Concomitant]
  5. VIT D [Concomitant]
  6. HYDROCOROTHIAZIDE [Concomitant]
  7. COMPAZINE [Concomitant]
  8. SIRNETHECONE [Concomitant]
  9. PRILOSEC [Concomitant]

REACTIONS (7)
  - Choking [None]
  - Drooling [None]
  - Lip disorder [None]
  - Blepharospasm [None]
  - Facial spasm [None]
  - Nightmare [None]
  - Product substitution issue [None]
